FAERS Safety Report 5291887-1 (Version None)
Quarter: 2007Q2

REPORT INFORMATION
  Report Type: 
  Country: None (occurrence: None)
  Receive Date: 20070410
  Receipt Date: 20070326
  Transmission Date: 20071010
  Serious: Yes (Other)
  Sender: FDA-Public Use
  Company Number: US-KINGPHARMUSA00001-K200700378

PATIENT

DRUGS (1)
  1. EPIPEN [Suspect]
     Dosage: UNK, SINGLE
     Route: 050
     Dates: start: 20070326, end: 20070326

REACTIONS (2)
  - ACCIDENTAL EXPOSURE [None]
  - HYPOAESTHESIA [None]
